FAERS Safety Report 25249393 (Version 1)
Quarter: 2025Q2

REPORT INFORMATION
  Report Type: Spontaneous
  Country: CN (occurrence: CN)
  Receive Date: 20250429
  Receipt Date: 20250429
  Transmission Date: 20250716
  Serious: Yes (Life-Threatening, Hospitalization, Other)
  Sender: RANBAXY
  Company Number: CN-SUN PHARMACEUTICAL INDUSTRIES LTD-2025R1-505155

PATIENT
  Age: 31 Year
  Sex: Female

DRUGS (4)
  1. DEXAMETHASONE [Suspect]
     Active Substance: DEXAMETHASONE
     Indication: Systemic lupus erythematosus
     Dosage: 40 MILLIGRAM, DAILY
     Route: 065
  2. DEXAMETHASONE [Suspect]
     Active Substance: DEXAMETHASONE
     Indication: Immune thrombocytopenia
  3. RECOMBINANT HUMAN THROMBOPOIETIN [Suspect]
     Active Substance: RECOMBINANT HUMAN THROMBOPOIETIN
     Indication: Systemic lupus erythematosus
     Route: 058
  4. RECOMBINANT HUMAN THROMBOPOIETIN [Suspect]
     Active Substance: RECOMBINANT HUMAN THROMBOPOIETIN
     Indication: Immune thrombocytopenia

REACTIONS (2)
  - Liver injury [Unknown]
  - Drug-induced liver injury [Unknown]
